FAERS Safety Report 5723472-9 (Version None)
Quarter: 2008Q2

REPORT INFORMATION
  Report Type: 
  Country: None (occurrence: None)
  Receive Date: 20080430
  Receipt Date: 20080417
  Transmission Date: 20081010
  Serious: Yes (Death, Hospitalization)
  Sender: FDA-Public Use
  Company Number: JP-AMGEN-US228451

PATIENT
  Sex: Female
  Weight: 43 kg

DRUGS (9)
  1. ENBREL [Suspect]
     Indication: RHEUMATOID ARTHRITIS
     Route: 058
     Dates: start: 20070428, end: 20070524
  2. PROGRAF [Suspect]
     Indication: RHEUMATOID ARTHRITIS
     Route: 048
     Dates: start: 20070123, end: 20070528
  3. PREDONINE [Concomitant]
     Indication: RHEUMATOID ARTHRITIS
     Route: 048
     Dates: start: 20070222, end: 20070506
  4. PREDONINE [Concomitant]
     Route: 048
     Dates: start: 20070507, end: 20070523
  5. GASMOTIN [Concomitant]
     Route: 048
  6. AMINOPHYLLINE [Concomitant]
  7. LANSOPRAZOLE [Concomitant]
     Route: 048
  8. MOBIC [Concomitant]
     Indication: RHEUMATOID ARTHRITIS
     Route: 048
     Dates: start: 20070222
  9. FLUTIDE DISKUS [Concomitant]

REACTIONS (3)
  - INTERSTITIAL LUNG DISEASE [None]
  - OESOPHAGEAL CANDIDIASIS [None]
  - SPUTUM CULTURE POSITIVE [None]
